FAERS Safety Report 7077917-5 (Version None)
Quarter: 2010Q4

REPORT INFORMATION
  Report Type: 
  Country: None (occurrence: None)
  Receive Date: 20101101
  Receipt Date: 20101025
  Transmission Date: 20110411
  Serious: Yes (Hospitalization)
  Sender: FDA-Public Use
  Company Number: MX-B.I. PHARMACEUTICALS,INC./RIDGEFIELD-2010-MX-00291MX

PATIENT
  Age: 31 Year
  Sex: Male

DRUGS (1)
  1. VIRAMUNE [Suspect]
     Indication: HIV INFECTION
     Dosage: ONE TABLET DAILY
     Route: 048

REACTIONS (1)
  - STEVENS-JOHNSON SYNDROME [None]
